FAERS Safety Report 17291422 (Version 4)
Quarter: 2020Q1

REPORT INFORMATION
  Report Type: Spontaneous
  Country: JP (occurrence: JP)
  Receive Date: 20200121
  Receipt Date: 20200316
  Transmission Date: 20200409
  Serious: Yes (Death, Other)
  Sender: FDA-Public Use
  Company Number: JP-AMGEN-JPNSP2020009188

PATIENT
  Age: 87 Year
  Sex: Female

DRUGS (6)
  1. INSIDE PAP [Concomitant]
     Indication: ARTHRALGIA
     Dosage: UNK
     Dates: start: 20191207, end: 20200111
  2. SUMILU STICK [Concomitant]
     Indication: ARTHRALGIA
     Dosage: UNK
     Dates: start: 20191207, end: 20200111
  3. CARERAM [Concomitant]
     Active Substance: IGURATIMOD
     Indication: RHEUMATOID ARTHRITIS
     Dosage: UNK
     Dates: end: 2019
  4. EVENITY [Suspect]
     Active Substance: ROMOSOZUMAB-AQQG
     Indication: OSTEOPOROSIS
     Dosage: 210 MILLIGRAM
     Route: 058
     Dates: start: 20190525, end: 20191207
  5. TAKEPRON [Concomitant]
     Active Substance: LANSOPRAZOLE
     Indication: ARTHRALGIA
     Dosage: 1 DOSAGE FORM, QD
     Dates: start: 20191207, end: 20200111
  6. LOXONIN [Concomitant]
     Active Substance: LOXOPROFEN SODIUM
     Indication: ARTHRALGIA
     Dosage: 1 DOSAGE FORM, TID
     Dates: start: 20191207, end: 20200111

REACTIONS (1)
  - Cardio-respiratory arrest [Fatal]

NARRATIVE: CASE EVENT DATE: 20200111
